FAERS Safety Report 12556387 (Version 1)
Quarter: 2016Q3

REPORT INFORMATION
  Report Type: Spontaneous
  Country: CN (occurrence: CN)
  Receive Date: 20160714
  Receipt Date: 20160714
  Transmission Date: 20161109
  Serious: Yes (Hospitalization)
  Sender: FDA-Public Use
  Company Number: CN-PFIZER INC-2016339332

PATIENT
  Age: 25 Year
  Sex: Female
  Weight: 56 kg

DRUGS (6)
  1. GLUCOSE [Concomitant]
     Active Substance: DEXTROSE
     Indication: VEHICLE SOLUTION USE
     Dosage: 50 ML, ONCE A DAY
     Route: 041
     Dates: start: 20160125, end: 20160201
  2. MEROPENEM. [Suspect]
     Active Substance: MEROPENEM
     Indication: RESPIRATORY TRACT INFECTION
     Dosage: 0.5 G, THREE TIMES A DAY
     Route: 041
     Dates: start: 20160125, end: 20160203
  3. DOXYCYCLINE HYDROCHLORIDE [Suspect]
     Active Substance: DOXYCYCLINE HYDROCHLORIDE
     Indication: RESPIRATORY TRACT INFECTION
     Dosage: 0.1 G, TWICE A DAY
     Route: 041
     Dates: start: 20160125, end: 20160201
  4. SODIUM CHLORIDE. [Concomitant]
     Active Substance: SODIUM CHLORIDE
     Indication: VEHICLE SOLUTION USE
     Dosage: 50 ML, THREE TIMES A DAY
     Route: 041
     Dates: start: 20160125, end: 20160201
  5. GANCICLOVIR. [Suspect]
     Active Substance: GANCICLOVIR
     Indication: RESPIRATORY TRACT INFECTION
     Dosage: 50 MG, ONCE A DAY
     Route: 041
     Dates: start: 20160125, end: 20160201
  6. ZYVOX [Suspect]
     Active Substance: LINEZOLID
     Indication: RESPIRATORY TRACT INFECTION
     Dosage: 0.6 G, 2X/DAY
     Route: 041
     Dates: start: 20160125, end: 20160201

REACTIONS (1)
  - Anaemia [Recovering/Resolving]

NARRATIVE: CASE EVENT DATE: 20160201
